FAERS Safety Report 7353502-2 (Version None)
Quarter: 2011Q1

REPORT INFORMATION
  Report Type: 
  Country: None (occurrence: None)
  Receive Date: 20110315
  Receipt Date: 20110304
  Transmission Date: 20110831
  Serious: Yes (Hospitalization)
  Sender: FDA-Public Use
  Company Number: US-JNJFOC-20110302754

PATIENT
  Sex: Male
  Weight: 94.35 kg

DRUGS (6)
  1. SIMVASTATIN [Concomitant]
     Indication: BLOOD CHOLESTEROL INCREASED
     Route: 048
  2. LIALDA [Concomitant]
     Indication: COLITIS ULCERATIVE
     Route: 048
  3. METHOTREXATE [Concomitant]
     Indication: COLITIS ULCERATIVE
     Dosage: DOSE REPORTED AS ^64 MG/TABLET/4 MG/ONCE EVERY TWELVE WEEKS/ORAL^
     Route: 048
  4. REMICADE [Suspect]
     Indication: COLITIS ULCERATIVE
     Route: 042
  5. REMICADE [Suspect]
     Route: 042
  6. AZATHIOPRINE [Concomitant]
     Indication: PROPHYLAXIS
     Dosage: INDICATION-^NOT TO REJECT INFLIXIMAB^  DOSE- UNCLEAR
     Route: 048

REACTIONS (9)
  - PYREXIA [None]
  - DIABETES MELLITUS [None]
  - NAUSEA [None]
  - ARTERIAL OCCLUSIVE DISEASE [None]
  - COUGH [None]
  - HYPERTENSION [None]
  - NERVOUSNESS [None]
  - GALLBLADDER DISORDER [None]
  - LIVER DISORDER [None]
